FAERS Safety Report 9112800 (Version 1)
Quarter: 2013Q1

REPORT INFORMATION
  Report Type: Spontaneous
  Country: BR (occurrence: BR)
  Receive Date: 20130211
  Receipt Date: 20130211
  Transmission Date: 20140127
  Serious: Yes (Other)
  Sender: FDA-Public Use
  Company Number: BR-ELI_LILLY_AND_COMPANY-BR201302000181

PATIENT
  Age: 60 Year
  Sex: Female
  Weight: 62 kg

DRUGS (9)
  1. GEMZAR [Suspect]
     Indication: MALIGNANT RESPIRATORY TRACT NEOPLASM
     Dosage: 1610 MG, UNKNOWN
     Route: 042
     Dates: start: 20130114
  2. CISPLATIN [Concomitant]
     Dosage: 128.8 MG, UNKNOWN
     Route: 042
  3. ONDANSETRON [Concomitant]
     Indication: CHEMOTHERAPY
     Dosage: 8 MG, UNKNOWN
     Route: 042
  4. DEXAMETASONA                       /00016001/ [Concomitant]
     Dosage: 20 MG, UNKNOWN
     Route: 042
  5. PARACETAMOL [Concomitant]
     Dosage: UNK, UNKNOWN
     Route: 065
  6. DIPIRONA [Concomitant]
     Dosage: UNK, UNKNOWN
     Route: 065
  7. OXYCODONE [Concomitant]
     Dosage: UNK, UNKNOWN
     Route: 065
  8. OMEPRAZOL [Concomitant]
     Dosage: UNK, UNKNOWN
     Route: 065
  9. METOCLOPRAMIDA [Concomitant]

REACTIONS (3)
  - Oxygen saturation decreased [Recovered/Resolved]
  - Dyspnoea [Recovered/Resolved]
  - Drug hypersensitivity [Recovered/Resolved]
